FAERS Safety Report 18615597 (Version 3)
Quarter: 2022Q1

REPORT INFORMATION
  Report Type: Spontaneous
  Country: VE (occurrence: VE)
  Receive Date: 20201214
  Receipt Date: 20220124
  Transmission Date: 20220423
  Serious: Yes (Other)
  Sender: FDA-Public Use
  Company Number: NVSC2019VE035016

PATIENT
  Sex: Female
  Weight: 80 kg

DRUGS (4)
  1. GLIVEC [Suspect]
     Active Substance: IMATINIB MESYLATE
     Indication: Chronic myeloid leukaemia
     Dosage: 4 DF, QD (4 OF 100 MG TABLETS)
     Route: 048
     Dates: start: 201910
  2. GLIVEC [Suspect]
     Active Substance: IMATINIB MESYLATE
     Dosage: 4 DF (4X100 MG TABLETS)
     Route: 065
  3. GLIVEC [Suspect]
     Active Substance: IMATINIB MESYLATE
     Dosage: 4 DF (4X100 MG TABLETS)
     Route: 065
  4. GLIVEC [Suspect]
     Active Substance: IMATINIB MESYLATE
     Dosage: 300 MG
     Route: 065

REACTIONS (18)
  - White blood cell count increased [Recovering/Resolving]
  - Chronic myeloid leukaemia recurrent [Unknown]
  - Philadelphia chromosome positive [Unknown]
  - Pain in extremity [Recovered/Resolved]
  - Nausea [Recovered/Resolved]
  - Contusion [Recovered/Resolved]
  - Myalgia [Recovered/Resolved]
  - Ecchymosis [Recovered/Resolved]
  - Haemoglobin decreased [Not Recovered/Not Resolved]
  - Fatigue [Unknown]
  - Ear pain [Unknown]
  - Malaise [Unknown]
  - Vomiting [Unknown]
  - Diarrhoea [Unknown]
  - Rash macular [Unknown]
  - Platelet count increased [Unknown]
  - Off label use [Unknown]
  - Therapy non-responder [Unknown]
